FAERS Safety Report 8115710-2 (Version None)
Quarter: 2012Q1

REPORT INFORMATION
  Report Type: 
  Country: None (occurrence: None)
  Receive Date: 20120206
  Receipt Date: 20120201
  Transmission Date: 20120608
  Serious: Yes (Hospitalization)
  Sender: FDA-Public Use
  Company Number: NL-PFIZER INC-2012028483

PATIENT
  Age: 69 Year
  Sex: Male
  Weight: 120 kg

DRUGS (4)
  1. BARNIDIPINE HYDROCHLORIDE [Concomitant]
     Dosage: 20 MG, UNK
     Dates: start: 20090101
  2. HYDROCHLOROTHIAZIDE [Concomitant]
     Dosage: 25 MG, UNK
     Dates: start: 20090101
  3. DOXAZOSIN MESYLATE [Suspect]
     Indication: HYPERTENSION
     Dosage: 8 MG, UNK
     Dates: start: 20110801
  4. SPIRONOLACTONE [Suspect]
     Indication: HYPERTENSION
     Dosage: 100 MG, DAILY
     Dates: start: 20110801

REACTIONS (3)
  - ERECTILE DYSFUNCTION [None]
  - DIZZINESS [None]
  - FATIGUE [None]
